FAERS Safety Report 18050133 (Version 13)
Quarter: 2024Q1

REPORT INFORMATION
  Report Type: Other
  Country: AT (occurrence: None)
  Receive Date: 20200721
  Receipt Date: 20240118
  Transmission Date: 20240410
  Serious: No
  Sender: FDA-Public Use
  Company Number: AT-ROCHE-2643670

PATIENT
  Age: 44 Year
  Sex: Female

DRUGS (60)
  1. OCRELIZUMAB [Suspect]
     Active Substance: OCRELIZUMAB
     Indication: Primary progressive multiple sclerosis
     Dosage: 300 MG/250 ML?SUBSEQUENT DOSE RECEIVED ON 13/MAY/2019
     Route: 042
     Dates: start: 20190429
  2. OCRELIZUMAB [Suspect]
     Active Substance: OCRELIZUMAB
     Indication: Progressive relapsing multiple sclerosis
     Route: 042
     Dates: start: 20191118, end: 20191118
  3. OCRELIZUMAB [Suspect]
     Active Substance: OCRELIZUMAB
     Route: 042
     Dates: start: 20230517, end: 20230517
  4. OCRELIZUMAB [Suspect]
     Active Substance: OCRELIZUMAB
     Route: 042
     Dates: start: 20210111, end: 20210111
  5. OCRELIZUMAB [Suspect]
     Active Substance: OCRELIZUMAB
     Route: 042
     Dates: start: 20200622, end: 20200622
  6. OCRELIZUMAB [Suspect]
     Active Substance: OCRELIZUMAB
     Route: 042
     Dates: start: 20210909, end: 20210909
  7. OCRELIZUMAB [Suspect]
     Active Substance: OCRELIZUMAB
     Route: 042
     Dates: start: 20220912, end: 20220912
  8. OCRELIZUMAB [Suspect]
     Active Substance: OCRELIZUMAB
     Route: 042
     Dates: start: 20220309, end: 20220309
  9. OCRELIZUMAB [Suspect]
     Active Substance: OCRELIZUMAB
     Route: 042
     Dates: start: 20240103, end: 20240103
  10. NEBIVOLOL HYDROCHLORIDE [Concomitant]
     Active Substance: NEBIVOLOL HYDROCHLORIDE
     Route: 048
  11. SIMVASTATIN [Concomitant]
     Active Substance: SIMVASTATIN
     Route: 048
     Dates: start: 20200603, end: 20200603
  12. BETHANECHOL CHLORIDE [Concomitant]
     Active Substance: BETHANECHOL CHLORIDE
     Route: 048
     Dates: end: 2021
  13. AGLANDIN (AUSTRIA) [Concomitant]
     Route: 048
  14. ACIMED [Concomitant]
     Dosage: 1 CAPSULE
     Route: 048
  15. SOLUDACORTIN [Concomitant]
     Indication: Premedication
     Route: 042
     Dates: start: 20190429, end: 20190429
  16. SOLUDACORTIN [Concomitant]
     Route: 042
     Dates: start: 20190513, end: 20190513
  17. SOLUDACORTIN [Concomitant]
     Route: 042
     Dates: start: 20191118, end: 20191118
  18. SOLUDACORTIN [Concomitant]
     Route: 042
     Dates: start: 20200622, end: 20200622
  19. SOLUDACORTIN [Concomitant]
     Route: 042
     Dates: start: 20210111, end: 20210111
  20. DIPHENHYDRAMINE HYDROCHLORIDE [Concomitant]
     Active Substance: DIPHENHYDRAMINE HYDROCHLORIDE
     Indication: Premedication
     Route: 042
     Dates: start: 20190429, end: 20190429
  21. DIPHENHYDRAMINE HYDROCHLORIDE [Concomitant]
     Active Substance: DIPHENHYDRAMINE HYDROCHLORIDE
     Route: 042
     Dates: start: 20200622, end: 20200622
  22. DIPHENHYDRAMINE HYDROCHLORIDE [Concomitant]
     Active Substance: DIPHENHYDRAMINE HYDROCHLORIDE
     Route: 042
     Dates: start: 20210111, end: 20210111
  23. DIPHENHYDRAMINE HYDROCHLORIDE [Concomitant]
     Active Substance: DIPHENHYDRAMINE HYDROCHLORIDE
     Route: 042
     Dates: start: 20190513, end: 20190513
  24. DIPHENHYDRAMINE HYDROCHLORIDE [Concomitant]
     Active Substance: DIPHENHYDRAMINE HYDROCHLORIDE
     Route: 042
     Dates: start: 20191118, end: 20191118
  25. DIPHENHYDRAMINE HYDROCHLORIDE [Concomitant]
     Active Substance: DIPHENHYDRAMINE HYDROCHLORIDE
     Route: 042
     Dates: start: 20210909, end: 20210909
  26. DIPHENHYDRAMINE HYDROCHLORIDE [Concomitant]
     Active Substance: DIPHENHYDRAMINE HYDROCHLORIDE
     Dosage: ONCE BEFORE INFUSION
     Route: 042
     Dates: start: 20220309, end: 20220309
  27. DIPHENHYDRAMINE HYDROCHLORIDE [Concomitant]
     Active Substance: DIPHENHYDRAMINE HYDROCHLORIDE
     Route: 042
     Dates: start: 20220912, end: 20220912
  28. DIPHENHYDRAMINE HYDROCHLORIDE [Concomitant]
     Active Substance: DIPHENHYDRAMINE HYDROCHLORIDE
     Route: 042
     Dates: start: 20230517, end: 20230517
  29. DIPHENHYDRAMINE HYDROCHLORIDE [Concomitant]
     Active Substance: DIPHENHYDRAMINE HYDROCHLORIDE
     Route: 042
     Dates: start: 20240103, end: 20240103
  30. ACETAMINOPHEN [Concomitant]
     Active Substance: ACETAMINOPHEN
     Indication: Premedication
     Route: 048
     Dates: start: 20190429, end: 20190429
  31. ACETAMINOPHEN [Concomitant]
     Active Substance: ACETAMINOPHEN
     Route: 048
     Dates: start: 20190513, end: 20190513
  32. ACETAMINOPHEN [Concomitant]
     Active Substance: ACETAMINOPHEN
     Route: 048
     Dates: start: 20200622, end: 20200622
  33. ACETAMINOPHEN [Concomitant]
     Active Substance: ACETAMINOPHEN
     Route: 048
     Dates: start: 20191118, end: 20191118
  34. ACETAMINOPHEN [Concomitant]
     Active Substance: ACETAMINOPHEN
     Route: 048
     Dates: start: 20210111, end: 20210111
  35. ACETAMINOPHEN [Concomitant]
     Active Substance: ACETAMINOPHEN
     Route: 048
     Dates: start: 20210909, end: 20210909
  36. ACETAMINOPHEN [Concomitant]
     Active Substance: ACETAMINOPHEN
     Route: 048
     Dates: start: 20220309, end: 20220309
  37. GINKGO [Concomitant]
     Active Substance: GINKGO
     Route: 048
     Dates: start: 20200603
  38. VIROPEL [Concomitant]
     Indication: Prophylaxis
     Dosage: SUBSEQUENT DOSE RECEIVED ON 23/MAY/2023
     Route: 048
     Dates: start: 20200625, end: 20200702
  39. VIROPEL [Concomitant]
     Route: 048
     Dates: start: 20200703, end: 20200706
  40. VIROPEL [Concomitant]
     Route: 048
     Dates: start: 20200707, end: 20200806
  41. VIROPEL [Concomitant]
     Route: 048
     Dates: start: 20210104, end: 202102
  42. VIROPEL [Concomitant]
     Route: 048
     Dates: start: 20220307
  43. FOSFOMYCIN TROMETHAMINE [Concomitant]
     Active Substance: FOSFOMYCIN TROMETHAMINE
     Route: 048
     Dates: start: 20190429
  44. METASOL [Concomitant]
     Active Substance: BENZOPHENONE\HYDROQUINONE
     Indication: Prophylaxis
     Route: 042
     Dates: start: 20210909, end: 20210909
  45. METASOL [Concomitant]
     Active Substance: BENZOPHENONE\HYDROQUINONE
     Route: 042
     Dates: start: 20220309, end: 20220309
  46. METASOL [Concomitant]
     Active Substance: BENZOPHENONE\HYDROQUINONE
     Route: 042
     Dates: start: 20220912, end: 20220912
  47. METASOL [Concomitant]
     Active Substance: BENZOPHENONE\HYDROQUINONE
     Route: 042
     Dates: start: 20230517, end: 20230517
  48. METASOL [Concomitant]
     Active Substance: BENZOPHENONE\HYDROQUINONE
     Route: 042
     Dates: start: 20240103, end: 20240103
  49. CHOLECALCIFEROL [Concomitant]
     Active Substance: CHOLECALCIFEROL
     Route: 048
     Dates: end: 202202
  50. PANTOPRAZOLE SODIUM [Concomitant]
     Active Substance: PANTOPRAZOLE SODIUM
     Route: 048
     Dates: start: 20220309, end: 20220309
  51. FURADANTIN [Concomitant]
     Active Substance: NITROFURANTOIN
     Route: 048
     Dates: start: 20220307, end: 20220311
  52. ACETAMINOPHEN [Concomitant]
     Active Substance: ACETAMINOPHEN
     Route: 048
     Dates: start: 20220912, end: 20220912
  53. ACETAMINOPHEN [Concomitant]
     Active Substance: ACETAMINOPHEN
     Route: 048
     Dates: start: 20230517, end: 20230517
  54. ACETAMINOPHEN [Concomitant]
     Active Substance: ACETAMINOPHEN
     Route: 048
     Dates: start: 20240103, end: 20240103
  55. DIETARY SUPPLEMENT [Concomitant]
     Active Substance: DIETARY SUPPLEMENT
  56. PANTOPRAZOLE SODIUM [Concomitant]
     Active Substance: PANTOPRAZOLE SODIUM
     Route: 048
     Dates: start: 20230517, end: 20230517
  57. PANTOPRAZOLE SODIUM [Concomitant]
     Active Substance: PANTOPRAZOLE SODIUM
     Route: 048
     Dates: start: 20240103, end: 20240103
  58. SOLU-MEDROL [Concomitant]
     Active Substance: METHYLPREDNISOLONE SODIUM SUCCINATE
     Route: 042
     Dates: start: 20210628, end: 20210702
  59. MOTRIM (AUSTRIA) [Concomitant]
     Dates: start: 20230723, end: 20230801
  60. TRAZODONE HYDROCHLORIDE [Concomitant]
     Active Substance: TRAZODONE HYDROCHLORIDE
     Dates: start: 2023, end: 2023

REACTIONS (1)
  - Genital herpes [Recovering/Resolving]

NARRATIVE: CASE EVENT DATE: 20200624
